FAERS Safety Report 8269357-8 (Version None)
Quarter: 2012Q2

REPORT INFORMATION
  Report Type: 
  Country: None (occurrence: None)
  Receive Date: 20120409
  Receipt Date: 20120315
  Transmission Date: 20120825
  Serious: Yes (Other)
  Sender: FDA-Public Use
  Company Number: US-ALLERGAN-1203768US

PATIENT
  Age: 61 Year
  Sex: Female

DRUGS (1)
  1. BOTOX COSMETIC [Suspect]
     Indication: SKIN WRINKLING
     Dosage: 24 UNITS, SINGLE
     Route: 030
     Dates: start: 20120314, end: 20120314

REACTIONS (5)
  - EYE SWELLING [None]
  - PRURITUS [None]
  - HYPERSENSITIVITY [None]
  - CIRCUMORAL OEDEMA [None]
  - SWELLING FACE [None]
